FAERS Safety Report 6303142-9 (Version None)
Quarter: 2009Q3

REPORT INFORMATION
  Report Type: 
  Country: None (occurrence: None)
  Receive Date: 20090810
  Receipt Date: 20090728
  Transmission Date: 20100115
  Serious: Yes (Hospitalization)
  Sender: FDA-Public Use
  Company Number: US-JNJCH-2009021212

PATIENT
  Sex: Male

DRUGS (3)
  1. SUDAFED 12 HOUR [Suspect]
     Indication: NASOPHARYNGITIS
     Dosage: TEXT:UNSPECIFIED
     Route: 065
     Dates: start: 20070401
  2. BENADRYL [Suspect]
     Indication: DRUG USE FOR UNKNOWN INDICATION
     Dosage: TEXT:UNSPECIFIED
     Route: 065
  3. MOTRIN [Suspect]
     Indication: NASOPHARYNGITIS
     Dosage: TEXT:UNSPECIFIED
     Route: 065

REACTIONS (1)
  - TOXIC EPIDERMAL NECROLYSIS [None]
